FAERS Safety Report 5080371-6 (Version None)
Quarter: 2006Q3

REPORT INFORMATION
  Report Type: 
  Country: None (occurrence: None)
  Receive Date: 20060814
  Receipt Date: 20060814
  Transmission Date: 20061208
  Serious: Yes (Life-Threatening, Hospitalization)
  Sender: FDA-Public Use
  Company Number: None

PATIENT
  Sex: Male
  Weight: 9 kg

DRUGS (1)
  1. DESMOPRESSIN [Suspect]
     Indication: COAGULOPATHY
     Dosage: DDVAP  1 TIME IN PM IV  DDVAP 1 X 2 PM NEXT DAY IV
     Route: 042
     Dates: start: 20060629, end: 20060629

REACTIONS (4)
  - BLOOD SODIUM DECREASED [None]
  - CONDITION AGGRAVATED [None]
  - RESPIRATORY FAILURE [None]
  - TONIC CLONIC MOVEMENTS [None]
